FAERS Safety Report 6182288-2 (Version None)
Quarter: 2009Q2

REPORT INFORMATION
  Report Type: 
  Country: None (occurrence: None)
  Receive Date: 20090507
  Receipt Date: 20090430
  Transmission Date: 20091009
  Serious: Yes (Hospitalization)
  Sender: FDA-Public Use
  Company Number: FR-BRISTOL-MYERS SQUIBB COMPANY-14613343

PATIENT
  Age: 74 Year
  Sex: Male

DRUGS (6)
  1. GLUCOPHAGE [Suspect]
     Indication: TYPE 2 DIABETES MELLITUS
     Route: 048
     Dates: end: 20081024
  2. ACTOS [Suspect]
     Indication: TYPE 2 DIABETES MELLITUS
     Dosage: TABS
     Route: 048
     Dates: end: 20081024
  3. DAONIL [Suspect]
     Indication: TYPE 2 DIABETES MELLITUS
     Route: 048
     Dates: end: 20081024
  4. PRAVADUAL [Concomitant]
  5. COAPROVEL [Concomitant]
     Indication: HYPERTENSION
  6. ALDALIX [Concomitant]
     Indication: HYPERTENSION
     Dosage: TABS
     Route: 048
     Dates: end: 20081024

REACTIONS (2)
  - FALL [None]
  - HYPOGLYCAEMIA [None]
